FAERS Safety Report 6915485-6 (Version None)
Quarter: 2010Q3

REPORT INFORMATION
  Report Type: 
  Country: None (occurrence: None)
  Receive Date: 20100806
  Receipt Date: 20100806
  Transmission Date: 20110219
  Serious: No
  Sender: FDA-Public Use
  Company Number: None

PATIENT
  Age: 78 Year
  Sex: Male
  Weight: 48.0813 kg

DRUGS (2)
  1. ENALAPRIL MALEATE [Suspect]
     Indication: HYPERTENSION
     Dosage: 10 MG BID PO
     Route: 048
     Dates: start: 20100101, end: 20100726
  2. BACTRIM DS [Suspect]
     Indication: EPIDIDYMITIS
     Dosage: 1 TAB BID PO
     Route: 048
     Dates: start: 20100721

REACTIONS (1)
  - ANGIOEDEMA [None]
